FAERS Safety Report 21705310 (Version 1)
Quarter: 2022Q4

REPORT INFORMATION
  Report Type: Spontaneous
  Country: HU (occurrence: HU)
  Receive Date: 20221209
  Receipt Date: 20221209
  Transmission Date: 20230112
  Serious: Yes (Other)
  Sender: FDA-Public Use
  Company Number: HU-BAYER-2022P025493

PATIENT
  Age: 60 Year
  Sex: Male

DRUGS (1)
  1. STIVARGA [Suspect]
     Active Substance: REGORAFENIB
     Indication: Colorectal cancer metastatic
     Dosage: UNK
     Dates: start: 20150601, end: 20170604

REACTIONS (8)
  - Metastases to lung [None]
  - Metastases to liver [None]
  - Pleural effusion [None]
  - Laboratory test abnormal [None]
  - Stomatitis [None]
  - Dysphonia [None]
  - Hypertension [None]
  - Palmar-plantar erythrodysaesthesia syndrome [None]
